FAERS Safety Report 8195675-8 (Version None)
Quarter: 2012Q1

REPORT INFORMATION
  Report Type: 
  Country: None (occurrence: None)
  Receive Date: 20120308
  Receipt Date: 20120227
  Transmission Date: 20120608
  Serious: Yes (Other)
  Sender: FDA-Public Use
  Company Number: US-ELI_LILLY_AND_COMPANY-US200910006018

PATIENT
  Sex: Male

DRUGS (13)
  1. TOPAMAX [Concomitant]
  2. TOPIRAMATE [Concomitant]
  3. ZYPREXA [Suspect]
     Indication: SCHIZOPHRENIA
     Dosage: 5 MG, PRN
     Route: 048
  4. CELEXA [Concomitant]
  5. SEROQUEL [Concomitant]
  6. ABILIFY [Concomitant]
  7. GEODON [Concomitant]
  8. ZYPREXA [Suspect]
     Dosage: 20 MG, EACH EVENING
     Route: 048
  9. FOSAMAX [Concomitant]
  10. ZYPREXA [Suspect]
     Dosage: 15 MG, EACH EVENING
  11. HYDROXYZINE [Concomitant]
  12. CLOZARIL [Concomitant]
  13. FORTEO [Concomitant]

REACTIONS (15)
  - OVERDOSE [None]
  - HYPERTENSION [None]
  - BLOOD ALKALINE PHOSPHATASE INCREASED [None]
  - RASH [None]
  - WEIGHT INCREASED [None]
  - ONYCHOMYCOSIS [None]
  - TOOTH INFECTION [None]
  - HYPERLIPIDAEMIA [None]
  - DIABETES MELLITUS [None]
  - SINUSITIS [None]
  - CELLULITIS [None]
  - TARDIVE DYSKINESIA [None]
  - GINGIVITIS [None]
  - HEPATITIS B [None]
  - WOUND HAEMORRHAGE [None]
